FAERS Safety Report 17936365 (Version 1)
Quarter: 2020Q2

REPORT INFORMATION
  Report Type: Spontaneous
  Country: US (occurrence: US)
  Receive Date: 20200624
  Receipt Date: 20200624
  Transmission Date: 20200714
  Serious: No
  Sender: FDA-Public Use
  Company Number: US-AKRON, INC.-2086606

PATIENT
  Age: 72 Year
  Sex: Male

DRUGS (1)
  1. LACTULOSE SOLUTION USP 473ML [Suspect]
     Active Substance: LACTULOSE
     Route: 048

REACTIONS (1)
  - Gastrointestinal hypermotility [Unknown]
